FAERS Safety Report 7819695-5 (Version None)
Quarter: 2011Q4

REPORT INFORMATION
  Report Type: 
  Country: None (occurrence: None)
  Receive Date: 20111018
  Receipt Date: 20100902
  Transmission Date: 20120403
  Serious: No
  Sender: FDA-Public Use
  Company Number: US-ASTRAZENECA-2010SE41445

PATIENT
  Age: 583 Month
  Sex: Male
  Weight: 77.1 kg

DRUGS (1)
  1. SYMBICORT [Suspect]
     Dosage: 80-4.5 MCG -2 TWO TIMES A DAY
     Route: 055
     Dates: start: 20100401

REACTIONS (2)
  - DYSPHONIA [None]
  - THERAPY REGIMEN CHANGED [None]
